FAERS Safety Report 12489673 (Version 3)
Quarter: 2018Q3

REPORT INFORMATION
  Report Type: Report from Study
  Country: US (occurrence: US)
  Receive Date: 20160622
  Receipt Date: 20180926
  Transmission Date: 20181010
  Serious: Yes (Hospitalization, Other)
  Sender: FDA-Public Use
  Company Number: US-SA-2015SA186525

PATIENT
  Age: 48 Year
  Sex: Male
  Weight: 56.69 kg

DRUGS (3)
  1. AGALSIDASE BETA [Suspect]
     Active Substance: AGALSIDASE BETA
     Dosage: 60.00, Q2
     Route: 041
     Dates: start: 20170709
  2. SOLU?CORTEF [Concomitant]
     Active Substance: HYDROCORTISONE SODIUM SUCCINATE
     Indication: PREMEDICATION
     Dosage: UNK
     Route: 042
  3. AGALSIDASE BETA [Suspect]
     Active Substance: AGALSIDASE BETA
     Indication: FABRY^S DISEASE
     Dosage: 1.05 MG/KG, QOW
     Route: 041

REACTIONS (10)
  - Atrial fibrillation [Recovering/Resolving]
  - Neoplasm malignant [Unknown]
  - Hyperhidrosis [Unknown]
  - Vomiting [Recovering/Resolving]
  - Vomiting [Unknown]
  - Chills [Unknown]
  - Feeding disorder [Recovering/Resolving]
  - Treatment noncompliance [Unknown]
  - Abdominal pain [Unknown]
  - Syncope [Recovering/Resolving]

NARRATIVE: CASE EVENT DATE: 20150903
